FAERS Safety Report 22193913 (Version 2)
Quarter: 2023Q2

REPORT INFORMATION
  Report Type: Spontaneous
  Country: BE (occurrence: BE)
  Receive Date: 20230410
  Receipt Date: 20230420
  Transmission Date: 20230721
  Serious: Yes (Other)
  Sender: FDA-Public Use
  Company Number: BE-DSJP-DSE-2023-112663

PATIENT
  Age: 77 Year
  Sex: Female

DRUGS (6)
  1. BEMPEDOIC ACID [Suspect]
     Active Substance: BEMPEDOIC ACID
     Indication: Hypercholesterolaemia
     Dosage: 180 MG, QD
     Route: 065
     Dates: start: 20230111, end: 20230320
  2. CO BISOPROLOL [Concomitant]
     Indication: Hypertension
     Dosage: UNK
     Route: 065
     Dates: start: 2016
  3. DIOSMIN\HESPERIDIN [Concomitant]
     Active Substance: DIOSMIN\HESPERIDIN
     Indication: Varices oesophageal
     Dosage: 500 UNK, BID
     Route: 065
     Dates: start: 2019
  4. OMEPRAZOLE [Concomitant]
     Active Substance: OMEPRAZOLE
     Indication: Abdominal discomfort
     Dosage: 20 MG, QD
     Route: 065
     Dates: start: 2019
  5. UROLINA [Concomitant]
     Indication: Hypertonic bladder
     Dosage: 4 MG, QD
     Route: 065
     Dates: start: 2020
  6. NASONEX [Concomitant]
     Active Substance: MOMETASONE FUROATE
     Indication: Nasal obstruction
     Dosage: UNK UNK, BID (NASAL SPRAY)
     Route: 045
     Dates: start: 2021

REACTIONS (1)
  - Pancreatitis acute [Recovered/Resolved]

NARRATIVE: CASE EVENT DATE: 20230201
